FAERS Safety Report 8447163-9 (Version None)
Quarter: 2012Q2

REPORT INFORMATION
  Report Type: 
  Country: None (occurrence: None)
  Receive Date: 20120619
  Receipt Date: 20110826
  Transmission Date: 20120825
  Serious: No
  Sender: FDA-Public Use
  Company Number: US-PFIZER INC-K201100991

PATIENT
  Sex: Female
  Weight: 40.816 kg

DRUGS (11)
  1. METOPROLOL [Concomitant]
     Indication: BLOOD PRESSURE
     Dosage: 25 MG, 1X/DAY
  2. PLAVIX [Concomitant]
     Indication: ANTICOAGULANT THERAPY
     Dosage: 75 MG, 1X/DAY
  3. LEVOXYL [Suspect]
     Dosage: 100 UG, 1X/DAY
     Route: 048
  4. AMBIEN [Concomitant]
     Indication: INSOMNIA
     Dosage: 5 MG, AS NEEDED
  5. LEVOXYL [Suspect]
     Indication: HORMONE REPLACEMENT THERAPY
     Dosage: 125 UG, 1X/DAY
     Route: 048
     Dates: start: 19970301
  6. RANITIDINE [Concomitant]
     Indication: GASTROOESOPHAGEAL REFLUX DISEASE
     Dosage: 150 MG, 2X/DAY
  7. DIGOXIN [Concomitant]
     Indication: HEART RATE IRREGULAR
     Dosage: 0.125 MG, 1X/DAY
  8. ACTONEL [Concomitant]
     Indication: OSTEOPOROSIS
     Dosage: 35 MG, WEEKLY
  9. LEVOXYL [Suspect]
     Dosage: 75 UG, 1X/DAY
     Route: 048
  10. VITAMIN B-12 [Concomitant]
     Dosage: MONTHLY
  11. PRILOSEC [Concomitant]
     Indication: GASTROOESOPHAGEAL REFLUX DISEASE
     Dosage: 20 MG, 1X/DAY
     Route: 048

REACTIONS (1)
  - DYSPHAGIA [None]
